FAERS Safety Report 8807014 (Version 3)
Quarter: 2012Q4

REPORT INFORMATION
  Report Type: 
  Country: US (occurrence: US)
  Receive Date: 20120925
  Receipt Date: 20121029
  Transmission Date: 20130627
  Serious: Yes (Other)
  Sender: FDA-Public Use
  Company Number: PHEH2012US018351

PATIENT
  Age: 57 Year
  Sex: Female

DRUGS (32)
  1. GILENYA [Suspect]
     Indication: RELAPSING-REMITTING MULTIPLE SCLEROSIS
     Dosage: 0.5 mg, QD
     Route: 048
     Dates: start: 20111024
  2. GILENYA [Suspect]
     Indication: MULTIPLE SCLEROSIS
  3. OMEPRAZOLE [Concomitant]
     Indication: DYSPEPSIA
     Dosage: 40 mg, QD, as needed in the morning
     Route: 048
     Dates: start: 20100827
  4. OXYCODONE HYDROCHLORIDE [Concomitant]
     Dosage: 2 DF, TID
     Route: 048
     Dates: start: 20110511
  5. OYSTER SHELL CALCIUM WITH VITAMIN D [Concomitant]
     Dosage: 1 DF, QD (500 mg-125 mg unit)
     Route: 048
     Dates: start: 20100825
  6. PEG 3350 AND ELECTROLYTES [Concomitant]
     Dosage: 1 DF, PRN, mix and drink over 4 hours
     Route: 048
     Dates: start: 20120710
  7. PRIMIDONE [Concomitant]
     Dosage: 1 DF, BID
     Route: 048
     Dates: start: 20120523
  8. PRIMIDONE [Concomitant]
     Dosage: 2 DF, BID
     Route: 048
     Dates: start: 20120828
  9. TRAZODONE HYDROCHLORIDE [Concomitant]
     Indication: INSOMNIA
     Dosage: 1 DF, QHS
     Route: 048
     Dates: start: 20101021
  10. VESICARE [Concomitant]
     Indication: STRESS URINARY INCONTINENCE
     Dosage: 1 DF, QD
     Route: 048
     Dates: start: 20100414
  11. NYSTOP [Concomitant]
     Dosage: 1 DF, BID, 2-3 times daily on the affected area
     Route: 061
     Dates: start: 20110526
  12. MEDROXYPROGESTERONE ACETATE [Concomitant]
     Dosage: 2 DF, QD (2.5 mg oral tablet)
     Route: 048
     Dates: start: 20101227
  13. MEDROXYPROGESTERONE ACETATE [Concomitant]
     Dosage: 0.5 DF, QD (10 mg oral tablet)
     Route: 048
     Dates: start: 20111212
  14. CITALOPRAM HYDROBROMIDE [Concomitant]
     Indication: DEPRESSION
     Dosage: 1.5 DF, QD
     Route: 048
     Dates: start: 20080924
  15. LEVOTHYROXINE SODIUM [Concomitant]
     Indication: HYPOTHYROIDISM
     Dosage: 100 ug, QD
     Route: 048
     Dates: start: 20080317
  16. ESTRADIOL [Concomitant]
     Dosage: 1 DF, daily
     Route: 048
     Dates: start: 20101227
  17. DULCOLAX [Concomitant]
     Dates: start: 20120514
  18. HYDROCHLOROTHIAZIDE [Concomitant]
     Dosage: 1 DF, QD
     Route: 048
     Dates: start: 20090717
  19. CYCLOBENZAPRINE HYDROCHLORIDE [Concomitant]
     Dosage: 1 DF, QHS
     Route: 048
     Dates: start: 20070411
  20. FAMPRIDINE [Concomitant]
     Dosage: 1 DF, BID
     Route: 048
     Dates: start: 20110104
  21. BACLOFEN [Concomitant]
     Dosage: 2 DF, Q6H
     Route: 048
     Dates: start: 20080813
  22. DURAGESIC [Concomitant]
     Dosage: 25 ug/ hour , Q72H
     Route: 062
     Dates: start: 20120322
  23. AMLODIPINE BESILATE [Concomitant]
     Dosage: 1 DF, QD
     Route: 048
     Dates: start: 20050502
  24. GABAPENTIN [Concomitant]
     Dosage: 1 DF, QD, in the morning, 1 DF in the noon and 2 DF in the bed time
     Route: 048
     Dates: start: 20120417
  25. CALCIUM [Concomitant]
     Dosage: 1 DF, daily
     Route: 048
     Dates: start: 20110511
  26. MEDROXYPROGESTERONE [Concomitant]
  27. AMLODIPINE BESYLATE [Concomitant]
  28. TRAZODONE [Concomitant]
  29. CITALOPRAM [Concomitant]
  30. GABAPENTIN [Concomitant]
  31. CYCLOBENZAPRINE [Concomitant]
  32. LEVOTHYROXINE [Concomitant]

REACTIONS (5)
  - Large intestine polyp [Not Recovered/Not Resolved]
  - Constipation [Recovered/Resolved]
  - Haemorrhoids [Unknown]
  - Multiple sclerosis relapse [Unknown]
  - Muscle spasticity [Unknown]
